FAERS Safety Report 4524239-X (Version None)
Quarter: 2004Q4

REPORT INFORMATION
  Report Type: 
  Country: None (occurrence: None)
  Receive Date: 20041119
  Receipt Date: 20041004
  Transmission Date: 20050328
  Serious: No
  Sender: FDA-Public Use
  Company Number: PHEH2004US10042

PATIENT
  Age: 23 Year
  Sex: Female
  Weight: 57.6 kg

DRUGS (1)
  1. ZELNORM [Suspect]
     Indication: IRRITABLE BOWEL SYNDROME
     Dosage: 6 MG, BID, ORAL
     Route: 048
     Dates: start: 20031201

REACTIONS (2)
  - ALOPECIA [None]
  - MENSTRUATION IRREGULAR [None]
